FAERS Safety Report 20049490 (Version 1)
Quarter: 2021Q4

REPORT INFORMATION
  Report Type: Spontaneous
  Country: BR (occurrence: BR)
  Receive Date: 20211109
  Receipt Date: 20211109
  Transmission Date: 20220303
  Serious: Yes (Hospitalization)
  Sender: FDA-Public Use
  Company Number: BR-NOVOPROD-862710

PATIENT
  Age: 25 Year
  Sex: Female
  Weight: 53 kg

DRUGS (4)
  1. INSULIN HUMAN [Suspect]
     Active Substance: INSULIN HUMAN
     Dosage: 18+08
     Route: 065
  2. INSULIN HUMAN [Suspect]
     Active Substance: INSULIN HUMAN
     Indication: Diabetes mellitus
     Dosage: 14+06
     Route: 065
  3. INSULIN HUMAN [Suspect]
     Active Substance: INSULIN HUMAN
     Dosage: 20+10
     Route: 065
  4. INSULIN LISPRO [Concomitant]
     Active Substance: INSULIN LISPRO
     Dosage: 2 TO 4 IU DOSES ( IN MEALS)
     Route: 065

REACTIONS (4)
  - Coronary artery disease [Unknown]
  - Tonsillitis [Unknown]
  - Hyperglycaemia [Unknown]
  - Hypoglycaemia [Unknown]

NARRATIVE: CASE EVENT DATE: 20160331
